FAERS Safety Report 5061180-0 (Version None)
Quarter: 2006Q3

REPORT INFORMATION
  Report Type: 
  Country: None (occurrence: None)
  Receive Date: 20060725
  Receipt Date: 20060113
  Transmission Date: 20061208
  Serious: Yes (Other)
  Sender: FDA-Public Use
  Company Number: US-ROCHE-432368

PATIENT
  Age: 21 Year
  Sex: Female
  Weight: 47.6 kg

DRUGS (5)
  1. ACCUTANE [Suspect]
     Route: 048
     Dates: start: 19951204, end: 19960115
  2. ACCUTANE [Suspect]
     Dosage: ALTERNATING 40MG DAILY AND 80 MG DAILY.
     Route: 048
     Dates: start: 19960115, end: 19960315
  3. ACCUTANE [Suspect]
     Route: 048
     Dates: start: 19960315, end: 19960404
  4. ASACOL [Suspect]
     Route: 048
  5. 5-ASA [Suspect]
     Dosage: DRUG REPORTED AS 5-ASA PRODUCTS (NOS).
     Route: 048

REACTIONS (22)
  - ARTHRALGIA [None]
  - ARTHRITIS ENTEROPATHIC [None]
  - AUTOIMMUNE DISORDER [None]
  - BLEPHARITIS [None]
  - BLOOD CHOLESTEROL INCREASED [None]
  - COLITIS ULCERATIVE [None]
  - DEAFNESS [None]
  - DEPRESSION [None]
  - DIZZINESS [None]
  - DRY SKIN [None]
  - EPISCLERITIS [None]
  - HEADACHE [None]
  - INFLAMMATORY BOWEL DISEASE [None]
  - INNER EAR DISORDER [None]
  - LIP DRY [None]
  - MYALGIA [None]
  - NASAL DRYNESS [None]
  - RHINORRHOEA [None]
  - TINNITUS [None]
  - VERTIGO POSITIONAL [None]
  - VESTIBULAR DISORDER [None]
  - VESTIBULAR NEURONITIS [None]
